FAERS Safety Report 17522113 (Version 1)
Quarter: 2020Q1

REPORT INFORMATION
  Report Type: Spontaneous
  Country: US (occurrence: US)
  Receive Date: 20200310
  Receipt Date: 20200310
  Transmission Date: 20200409
  Serious: No
  Sender: FDA-Public Use
  Company Number: US-009507513-2002USA008879

PATIENT
  Age: 90 Year
  Sex: Female

DRUGS (2)
  1. TALIMOGENE LAHERPAREPVEC [Suspect]
     Active Substance: TALIMOGENE LAHERPAREPVEC
     Indication: MALIGNANT MELANOMA
     Dosage: TVEC DAYS 1 AND 22, FOLLOWED BY PEMBROLIZUMAB 200 MG/M2 AND TVEC EVERY 14 DAYS STARTING DAY 36.
  2. KEYTRUDA [Suspect]
     Active Substance: PEMBROLIZUMAB
     Indication: MALIGNANT MELANOMA
     Dosage: 200 MILLIGRAM/SQ. METER

REACTIONS (1)
  - Lymphocytic infiltration [Unknown]
